FAERS Safety Report 11302490 (Version 1)
Quarter: 2015Q3

REPORT INFORMATION
  Report Type: Spontaneous
  Country: GB (occurrence: GB)
  Receive Date: 20150723
  Receipt Date: 20150723
  Transmission Date: 20151125
  Serious: Yes (Other)
  Sender: FDA-Public Use
  Company Number: GB-TEVA-578885ACC

PATIENT
  Age: 68 Year
  Sex: Female
  Weight: 106 kg

DRUGS (21)
  1. PARACETAMOL [Concomitant]
     Active Substance: ACETAMINOPHEN
     Dosage: TAKE 1-2 TABLETS 6-8 HOURLY ONLY AS NECESSARY
     Dates: start: 20150303
  2. TOLTERODINE TARTRATE. [Concomitant]
     Active Substance: TOLTERODINE TARTRATE
     Dosage: 2 DOSAGE FORMS DAILY;
     Dates: start: 20150303
  3. ALLOPURINOL. [Concomitant]
     Active Substance: ALLOPURINOL
     Indication: GOUT
     Dosage: 1 DOSAGE FORMS DAILY; IN MORNING
     Dates: start: 20150303
  4. CETIRIZINE [Concomitant]
     Active Substance: CETIRIZINE HYDROCHLORIDE
     Indication: PRURITUS
     Dates: start: 20150513
  5. LOPERAMIDE [Concomitant]
     Active Substance: LOPERAMIDE
     Indication: DIARRHOEA
     Dosage: 1-2 TWICE A DAY
     Dates: start: 20150303
  6. MENTHOL. [Concomitant]
     Active Substance: MENTHOL
     Dosage: 1 DOSAGE FORMS DAILY;
     Dates: start: 20150501, end: 20150502
  7. WARFARIN SODIUM. [Concomitant]
     Active Substance: WARFARIN SODIUM
     Dates: start: 20150302
  8. ALFACALCIDOL [Concomitant]
     Active Substance: ALFACALCIDOL
     Dosage: 1 DOSAGE FORMS DAILY; IN MORNING
     Dates: start: 20150303
  9. ALGESAL [Concomitant]
     Active Substance: DIETHYLAMINE SALICYLATE
     Dosage: 3 DOSAGE FORMS DAILY;
     Dates: start: 20150303
  10. BENDROFLUMETHIAZIDE [Concomitant]
     Active Substance: BENDROFLUMETHIAZIDE
     Indication: BLOOD PRESSURE MEASUREMENT
     Dosage: 1 DOSAGE FORMS DAILY; IN MORNING
     Dates: start: 20150303
  11. AMITRIPTYLINE HYDROCHLORIDE. [Concomitant]
     Active Substance: AMITRIPTYLINE HYDROCHLORIDE
     Indication: PAIN
     Dosage: 1 DOSAGE FORMS DAILY; AT NIGHT
     Dates: start: 20150303
  12. CETRABEN EMOLLIENT BATH ADDITIVE [Concomitant]
     Dates: start: 20150303
  13. NITROFURANTOIN. [Suspect]
     Active Substance: NITROFURANTOIN
     Dates: start: 20150629
  14. FUROSEMIDE. [Concomitant]
     Active Substance: FUROSEMIDE
     Indication: CARDIAC DISORDER
     Dosage: 2 DOSAGE FORMS DAILY;
     Dates: start: 20150303
  15. LANSOPRAZOLE. [Concomitant]
     Active Substance: LANSOPRAZOLE
     Indication: GASTRITIS
     Dosage: 2 DOSAGE FORMS DAILY; IN MORNING
     Dates: start: 20150303
  16. BISOPROLOL [Concomitant]
     Active Substance: BISOPROLOL
     Indication: CARDIAC DISORDER
     Dosage: 1 DOSAGE FORMS DAILY; IN MORNING
     Dates: start: 20150303
  17. CHLORPHENAMINE [Concomitant]
     Active Substance: CHLORPHENIRAMINE MALEATE
     Indication: PRURITUS
     Dosage: TAKE ONE 4-6 HOURLY AS NECESSARY
     Dates: start: 20150513
  18. CODEINE PHOSPHATE [Concomitant]
     Active Substance: CODEINE PHOSPHATE
     Dosage: TAKE 1-2 TABLETS 4-6 HOURLY ONLY AS NECESSARY
     Dates: start: 20150303
  19. FYBOGEL [Concomitant]
     Active Substance: PLANTAGO OVATA SEED
     Dates: start: 20150303
  20. TRIMETHOPRIM. [Concomitant]
     Active Substance: TRIMETHOPRIM
     Dosage: 2 DOSAGE FORMS DAILY;
     Dates: start: 20150629, end: 20150702
  21. ENOXAPARIN [Concomitant]
     Active Substance: ENOXAPARIN
     Dosage: 1 DOSAGE FORMS DAILY;
     Route: 058
     Dates: start: 20150409, end: 20150410

REACTIONS (1)
  - Wheezing [Recovered/Resolved]

NARRATIVE: CASE EVENT DATE: 20150629
